FAERS Safety Report 16325120 (Version 1)
Quarter: 2019Q2

REPORT INFORMATION
  Report Type: Spontaneous
  Country: US (occurrence: US)
  Receive Date: 20190516
  Receipt Date: 20190516
  Transmission Date: 20190711
  Serious: Yes (Disabling, Other)
  Sender: FDA-Public Use
  Company Number: None

PATIENT
  Age: 29 Year
  Sex: Female
  Weight: 121.5 kg

DRUGS (6)
  1. FLONASE [Concomitant]
     Active Substance: FLUTICASONE PROPIONATE
  2. XANAX [Concomitant]
     Active Substance: ALPRAZOLAM
  3. DESOGESTREL-ETHINYL ESTRADIOL 0.15-0.03 MG TABLET [Suspect]
     Active Substance: DESOGESTREL\ETHINYL ESTRADIOL
     Indication: MENORRHAGIA
     Dosage: ?          QUANTITY:28 TABLET(S);?
     Route: 048
     Dates: start: 20120530, end: 20190401
  4. ZOLOFT [Concomitant]
     Active Substance: SERTRALINE HYDROCHLORIDE
  5. VITAMIN D [Concomitant]
     Active Substance: VITAMIN D NOS
  6. VITAMIN C [Concomitant]
     Active Substance: ASCORBIC ACID

REACTIONS (6)
  - Hepatic lesion [None]
  - Metastases to liver [None]
  - Hepatomegaly [None]
  - Hepatic steatosis [None]
  - Hepatic adenoma [None]
  - Blood oestrogen increased [None]

NARRATIVE: CASE EVENT DATE: 20190514
